FAERS Safety Report 25529544 (Version 1)
Quarter: 2025Q3

REPORT INFORMATION
  Report Type: Spontaneous
  Country: US (occurrence: None)
  Receive Date: 20250707
  Receipt Date: 20250707
  Transmission Date: 20251021
  Serious: Yes (Other)
  Sender: FDA-CTU
  Company Number: None

PATIENT
  Age: 25 Year
  Sex: Female
  Weight: 44.1 kg

DRUGS (2)
  1. MOXIFLOXACIN [Suspect]
     Active Substance: MOXIFLOXACIN
     Indication: Mycoplasma genitalium infection
     Dosage: OTHER QUANTITY : 1 CAPSULE(S);?FREQUENCY : DAILY;?
     Route: 048
     Dates: start: 20250630, end: 20250701
  2. NEXPLANON [Concomitant]
     Active Substance: ETONOGESTREL

REACTIONS (3)
  - Neuropathy peripheral [None]
  - Tendon pain [None]
  - Arthralgia [None]

NARRATIVE: CASE EVENT DATE: 20250701
